FAERS Safety Report 11312029 (Version 1)
Quarter: 2015Q3

REPORT INFORMATION
  Report Type: Report from Study
  Country: US (occurrence: NO)
  Receive Date: 20150727
  Receipt Date: 20150727
  Transmission Date: 20151125
  Serious: No
  Sender: FDA-Public Use
  Company Number: NO-FRI-1000078164

PATIENT
  Age: 71 Year
  Sex: Male
  Weight: 67 kg

DRUGS (4)
  1. ONBREZ [Concomitant]
     Active Substance: INDACATEROL
     Dates: start: 20140517, end: 20140826
  2. SPIRIVA [Concomitant]
     Active Substance: TIOTROPIUM BROMIDE MONOHYDRATE
     Dosage: 5 MCG
     Dates: start: 20090114
  3. SYMBICORORT [Concomitant]
     Dates: start: 20071107
  4. ROFLUMILAST [Suspect]
     Active Substance: ROFLUMILAST
     Indication: CHRONIC OBSTRUCTIVE PULMONARY DISEASE
     Dosage: 500 MCG
     Route: 048
     Dates: start: 20140528, end: 20140715

REACTIONS (1)
  - Abdominal pain upper [Recovered/Resolved]

NARRATIVE: CASE EVENT DATE: 20140530
